FAERS Safety Report 19693734 (Version 2)
Quarter: 2021Q4

REPORT INFORMATION
  Report Type: Report from Study
  Country: US (occurrence: US)
  Receive Date: 20210813
  Receipt Date: 20211230
  Transmission Date: 20220303
  Serious: Yes (Other)
  Sender: FDA-Public Use
  Company Number: US-BAUSCH-BL-2019-020331

PATIENT
  Age: 69 Year
  Sex: Female
  Weight: 62.198 kg

DRUGS (9)
  1. APRISO [Suspect]
     Active Substance: MESALAMINE
     Indication: Colitis ulcerative
     Dosage: FOR ALMOST 15 YEARS 4 CAPSULES 1 TIME IN A DAY
     Route: 048
  2. APRISO [Suspect]
     Active Substance: MESALAMINE
     Route: 048
  3. APRISO [Suspect]
     Active Substance: MESALAMINE
     Dosage: 2 CAPSULES EVERY OTHER DAY; SAMPLES
     Route: 048
  4. ACIPHEX [Concomitant]
     Active Substance: RABEPRAZOLE SODIUM
     Indication: Gastric pH decreased
     Dosage: ALMOST FROM 22 YEARS
  5. PROTONIX [Concomitant]
     Active Substance: PANTOPRAZOLE SODIUM
     Indication: Gastric pH decreased
  6. CANASA [Concomitant]
     Active Substance: MESALAMINE
     Indication: Colitis ulcerative
     Dosage: NIGHT SUPPOSITORIES
  7. MESALAMINE [Concomitant]
     Active Substance: MESALAMINE
     Indication: Colitis ulcerative
     Dosage: STRENGTH: 4G/60ML
     Route: 054
  8. ANTACID [Concomitant]
     Active Substance: ALUMINUM HYDROXIDE\CALCIUM CARBONATE\DIMETHICONE\MAGNESIUM HYDROXIDE
     Indication: Product used for unknown indication
  9. GAS-X [Concomitant]
     Active Substance: DIMETHICONE
     Indication: Product used for unknown indication

REACTIONS (9)
  - Knee arthroplasty [Unknown]
  - Haemorrhage [Recovered/Resolved]
  - Abdominal discomfort [Not Recovered/Not Resolved]
  - Lymphoedema [Not Recovered/Not Resolved]
  - Depression [Not Recovered/Not Resolved]
  - Sleep disorder [Unknown]
  - Dyspepsia [Unknown]
  - Therapy interrupted [Unknown]
  - Intentional product use issue [Unknown]

NARRATIVE: CASE EVENT DATE: 20130101
